FAERS Safety Report 7333113-5 (Version None)
Quarter: 2011Q1

REPORT INFORMATION
  Report Type: 
  Country: None (occurrence: None)
  Receive Date: 20110304
  Receipt Date: 20110224
  Transmission Date: 20110831
  Serious: Yes (Hospitalization)
  Sender: FDA-Public Use
  Company Number: PHHY2011US15165

PATIENT
  Sex: Male

DRUGS (3)
  1. CINAMIC [Concomitant]
  2. AMANTADINE HCL [Concomitant]
     Dosage: 100 MG, UNK
  3. COMTAN [Suspect]
     Dosage: 200 MG, 5QD

REACTIONS (1)
  - CEREBROVASCULAR ACCIDENT [None]
